FAERS Safety Report 10478730 (Version 1)
Quarter: 2014Q3

REPORT INFORMATION
  Report Type: Spontaneous
  Country: GB (occurrence: GB)
  Receive Date: 20140926
  Receipt Date: 20140926
  Transmission Date: 20150326
  Serious: Yes (Other)
  Sender: FDA-Public Use
  Company Number: GB-AMGEN-GBRSP2014073302

PATIENT
  Sex: Female
  Weight: 70 kg

DRUGS (1)
  1. PROLIA [Suspect]
     Active Substance: DENOSUMAB
     Indication: OSTEOPOROSIS POSTMENOPAUSAL
     Route: 065

REACTIONS (11)
  - Dental operation [Unknown]
  - Liver disorder [Unknown]
  - Spinal deformity [Unknown]
  - Dyspnoea [Unknown]
  - Mobility decreased [Unknown]
  - Osteoarthritis [Unknown]
  - Body height decreased [Unknown]
  - Gastrointestinal disorder [Unknown]
  - Hysterectomy [Unknown]
  - Oophorectomy [Unknown]
  - Back pain [Unknown]
